FAERS Safety Report 18516749 (Version 1)
Quarter: 2020Q4

REPORT INFORMATION
  Report Type: Report from Study
  Country: US (occurrence: US)
  Receive Date: 20201118
  Receipt Date: 20201118
  Transmission Date: 20210114
  Serious: Yes (Other)
  Sender: FDA-Public Use
  Company Number: US-TEVA-2020-US-1848627

PATIENT
  Age: 64 Year
  Sex: Male

DRUGS (1)
  1. COPAXONE [Suspect]
     Active Substance: GLATIRAMER ACETATE
     Route: 058
     Dates: start: 20200809, end: 20201027

REACTIONS (3)
  - Seizure like phenomena [Unknown]
  - Tremor [Unknown]
  - Chills [Unknown]

NARRATIVE: CASE EVENT DATE: 20201027
